FAERS Safety Report 15832439 (Version 1)
Quarter: 2019Q1

REPORT INFORMATION
  Report Type: Report from Study
  Country: US (occurrence: US)
  Receive Date: 20190116
  Receipt Date: 20190116
  Transmission Date: 20190417
  Serious: Yes (Hospitalization, Other)
  Sender: FDA-Public Use
  Company Number: US-MYLANLABS-2019M1001288

PATIENT
  Age: 52 Year
  Sex: Male

DRUGS (5)
  1. PROBENECID. [Concomitant]
     Active Substance: PROBENECID
     Indication: RENAL DISORDER PROPHYLAXIS
     Dosage: 2 G 3 HRS BEFORE AND 1 G 2 HRS AND 8 HRS AFTER CIDOFOVIR ADMINISTRATION
     Route: 048
  2. MYCOPHENOLATE MOFETIL. [Suspect]
     Active Substance: MYCOPHENOLATE MOFETIL
     Indication: IMMUNOSUPPRESSANT DRUG THERAPY
     Dosage: 1 GRAM
     Route: 065
  3. CIDOFOVIR. [Suspect]
     Active Substance: CIDOFOVIR
     Indication: RENAL DISORDER PROPHYLAXIS
     Dosage: RECEIVED THREE DOSES
     Route: 042
  4. SIROLIMUS. [Suspect]
     Active Substance: SIROLIMUS
     Indication: IMMUNOSUPPRESSANT DRUG THERAPY
     Dosage: LEVEL 12 NG/ML
     Route: 065
  5. IMMUNOGLOBULIN                     /07494701/ [Concomitant]
     Active Substance: IMMUNE GLOBULIN NOS
     Indication: ADENOVIRUS INFECTION
     Dosage: RECEIVED TWO DOSES
     Route: 042

REACTIONS (4)
  - Pyelonephritis acute [Unknown]
  - Adenovirus infection [Recovered/Resolved]
  - Acute kidney injury [Unknown]
  - Iritis [Unknown]
